FAERS Safety Report 8983951 (Version 1)
Quarter: 2013Q1

REPORT INFORMATION
  Report Type: Spontaneous
  Country: US (occurrence: None)
  Receive Date: 20121218
  Receipt Date: 20121218
  Transmission Date: 20140127
  Serious: Yes (Hospitalization)
  Sender: FDA-Public Use
  Company Number: None

PATIENT
  Age: 20 Year
  Sex: Male
  Weight: 82.1 kg

DRUGS (1)
  1. LURASIDONE [Suspect]
     Indication: SCHIZOPHRENIA
     Dosage: 40 MG, QAM, PO
     Route: 048
     Dates: start: 201205, end: 201211

REACTIONS (6)
  - Disorientation [None]
  - Insomnia [None]
  - Economic problem [None]
  - Treatment noncompliance [None]
  - Agitation [None]
  - Paranoia [None]
